FAERS Safety Report 21361797 (Version 2)
Quarter: 2022Q4

REPORT INFORMATION
  Report Type: Spontaneous
  Country: JP (occurrence: JP)
  Receive Date: 20220922
  Receipt Date: 20221109
  Transmission Date: 20230113
  Serious: Yes (Hospitalization, Other)
  Sender: FDA-Public Use
  Company Number: JP-SUN PHARMACEUTICAL INDUSTRIES LTD-2022R1-355639

PATIENT
  Age: 48 Year
  Sex: Male

DRUGS (2)
  1. FINGOLIMOD [Suspect]
     Active Substance: FINGOLIMOD
     Indication: Multiple sclerosis
     Dosage: UNK
     Route: 065
  2. PREDNISOLONE [Suspect]
     Active Substance: PREDNISOLONE
     Indication: Multiple sclerosis
     Dosage: UNK
     Route: 065

REACTIONS (3)
  - Arthritis infective [Recovered/Resolved]
  - Bacteraemia [Recovered/Resolved]
  - Osteonecrosis [Recovered/Resolved]
